FAERS Safety Report 25070606 (Version 2)
Quarter: 2025Q1

REPORT INFORMATION
  Report Type: Spontaneous
  Country: CA (occurrence: CA)
  Receive Date: 20250312
  Receipt Date: 20250314
  Transmission Date: 20250409
  Serious: Yes (Other)
  Sender: PTC THERAPEUTICS
  Company Number: CA-PTC THERAPEUTICS INC.-CA-2025PTC000278

PATIENT
  Age: 8 Year
  Sex: Male

DRUGS (2)
  1. DEFLAZACORT [Suspect]
     Active Substance: DEFLAZACORT
     Indication: Duchenne muscular dystrophy
     Dosage: 0.9 MILLIGRAM/KILOGRAM, QD
     Route: 065
  2. VITAMIN D3 [Concomitant]
     Active Substance: CHOLECALCIFEROL
     Indication: Product used for unknown indication
     Dosage: 8000 INTERNATIONAL UNIT, QD

REACTIONS (6)
  - Spinal compression fracture [Unknown]
  - Spinal fracture [Unknown]
  - Growth retardation [Unknown]
  - Back pain [Recovered/Resolved]
  - Cushingoid [Unknown]
  - Gait inability [Unknown]
